FAERS Safety Report 23057857 (Version 1)
Quarter: 2023Q4

REPORT INFORMATION
  Report Type: Spontaneous
  Country: GB (occurrence: GB)
  Receive Date: 20231012
  Receipt Date: 20231012
  Transmission Date: 20240110
  Serious: Yes (Other)
  Sender: FDA-Public Use
  Company Number: GB-MHRA-MED-202308110820535900-FBDYP

PATIENT
  Sex: Female
  Weight: 9 kg

DRUGS (4)
  1. AZITHROMYCIN [Suspect]
     Active Substance: AZITHROMYCIN
     Indication: Ureaplasma infection
     Dosage: ONCE A DAY
     Route: 065
     Dates: start: 20230729, end: 20230731
  2. LORATADINE [Concomitant]
     Active Substance: LORATADINE
     Indication: Adverse drug reaction
     Route: 065
     Dates: start: 20230501
  3. METRONIDAZOLE [Concomitant]
     Active Substance: METRONIDAZOLE
     Indication: Gardnerella test
     Route: 065
     Dates: start: 20230722, end: 20230728
  4. Pregnacare Original [Concomitant]
     Indication: Adverse drug reaction
     Route: 065
     Dates: start: 20230710, end: 20230806

REACTIONS (10)
  - Tendonitis [Recovering/Resolving]
  - Haematochezia [Recovering/Resolving]
  - Extrasystoles [Not Recovered/Not Resolved]
  - Medication error [Unknown]
  - Oral candidiasis [Not Recovered/Not Resolved]
  - Diarrhoea [Recovered/Resolved]
  - Abdominal pain upper [Recovering/Resolving]
  - Nausea [Recovering/Resolving]
  - Chest pain [Not Recovered/Not Resolved]
  - Fatigue [Recovering/Resolving]

NARRATIVE: CASE EVENT DATE: 20230729
